FAERS Safety Report 9186597 (Version 21)
Quarter: 2018Q2

REPORT INFORMATION
  Report Type: Report from Study
  Country: CA (occurrence: CA)
  Receive Date: 20130325
  Receipt Date: 20180508
  Transmission Date: 20180711
  Serious: Yes (Other)
  Sender: FDA-Public Use
  Company Number: CA-ROCHE-1113546

PATIENT
  Age: 57 Year
  Sex: Male
  Weight: 106.8 kg

DRUGS (11)
  1. FOLIC ACID. [Concomitant]
     Active Substance: FOLIC ACID
  2. DIOVAN [Concomitant]
     Active Substance: VALSARTAN
  3. ACTEMRA [Suspect]
     Active Substance: TOCILIZUMAB
     Route: 042
     Dates: start: 20141119
  4. ACTEMRA [Suspect]
     Active Substance: TOCILIZUMAB
     Route: 042
     Dates: start: 20140331
  5. ACTEMRA [Suspect]
     Active Substance: TOCILIZUMAB
     Route: 042
     Dates: start: 20150204
  6. ARTHROTEC [Suspect]
     Active Substance: DICLOFENAC SODIUM\MISOPROSTOL
     Indication: PRODUCT USED FOR UNKNOWN INDICATION
     Route: 065
     Dates: end: 201209
  7. METHOTREXATE. [Concomitant]
     Active Substance: METHOTREXATE
  8. ACTEMRA [Suspect]
     Active Substance: TOCILIZUMAB
     Indication: RHEUMATOID ARTHRITIS
     Route: 042
     Dates: start: 20101214
  9. ACTEMRA [Suspect]
     Active Substance: TOCILIZUMAB
     Dosage: PATIENT WAS IN A CLINICAL TRIAL IN 2008
     Route: 042
     Dates: start: 2008, end: 20180322
  10. ACTEMRA [Suspect]
     Active Substance: TOCILIZUMAB
     Route: 042
     Dates: start: 20130725
  11. ACTEMRA [Suspect]
     Active Substance: TOCILIZUMAB
     Route: 042
     Dates: start: 20141023

REACTIONS (22)
  - Arthralgia [Unknown]
  - Productive cough [Unknown]
  - Arthritis infective [Unknown]
  - Infected skin ulcer [Recovered/Resolved]
  - Blood pressure increased [Unknown]
  - Rheumatoid arthritis [Unknown]
  - Nasopharyngitis [Unknown]
  - Skin ulcer [Recovering/Resolving]
  - Wound [Recovering/Resolving]
  - Infection [Unknown]
  - Wound infection [Unknown]
  - Oedema peripheral [Recovering/Resolving]
  - Infusion related reaction [Unknown]
  - Peripheral swelling [Recovering/Resolving]
  - Cyst [Unknown]
  - Renal impairment [Unknown]
  - Localised infection [Not Recovered/Not Resolved]
  - Localised infection [Not Recovered/Not Resolved]
  - Oxygen saturation decreased [Unknown]
  - Arthralgia [Not Recovered/Not Resolved]
  - Wound drainage [Unknown]
  - Blood pressure systolic increased [Not Recovered/Not Resolved]

NARRATIVE: CASE EVENT DATE: 201104
